FAERS Safety Report 9100890 (Version 2)
Quarter: 2014Q3

REPORT INFORMATION
  Report Type: Report from Study
  Country: MX (occurrence: MX)
  Receive Date: 20130215
  Receipt Date: 20140725
  Transmission Date: 20150326
  Serious: Yes (Death, Other)
  Sender: FDA-Public Use
  Company Number: PHHY2013MX014564

PATIENT
  Age: 61 Year
  Sex: Female

DRUGS (4)
  1. CARBIDOPA. [Concomitant]
     Active Substance: CARBIDOPA
     Dosage: UNK UKN, UNK
  2. LEVODOPA [Concomitant]
     Active Substance: LEVODOPA
     Dosage: UNK UKN, UNK
  3. BIPERIDEN [Concomitant]
     Active Substance: BIPERIDEN
     Dosage: 3 DF, DAILY
     Dates: start: 2001
  4. STALEVO [Suspect]
     Active Substance: CARBIDOPA\ENTACAPONE\LEVODOPA
     Indication: PARKINSON^S DISEASE
     Dosage: 2 DF (200/150/37.5MG), DAILY
     Route: 048
     Dates: start: 20120606, end: 20121010

REACTIONS (6)
  - Tremor [Unknown]
  - Disease complication [Fatal]
  - Parkinson^s disease [Unknown]
  - Poisoning [Unknown]
  - Renal failure [Unknown]
  - Loss of control of legs [Unknown]

NARRATIVE: CASE EVENT DATE: 201210
